FAERS Safety Report 4572579-0 (Version None)
Quarter: 2005Q1

REPORT INFORMATION
  Report Type: 
  Country: None (occurrence: None)
  Receive Date: 20050208
  Receipt Date: 20050131
  Transmission Date: 20050727
  Serious: Yes (Hospitalization)
  Sender: FDA-Public Use
  Company Number: 200510385JP

PATIENT
  Age: 50 Year
  Sex: Male

DRUGS (2)
  1. TAXOTERE [Suspect]
     Route: 041
  2. ANTINEOPLASTIC AND IMMUNOSUPPRESSIVE AGENTS [Concomitant]

REACTIONS (1)
  - PANCREATITIS ACUTE [None]
